FAERS Safety Report 21126791 (Version 2)
Quarter: 2022Q3

REPORT INFORMATION
  Report Type: Spontaneous
  Country: US (occurrence: US)
  Receive Date: 20220725
  Receipt Date: 20220831
  Transmission Date: 20221027
  Serious: No
  Sender: FDA-Public Use
  Company Number: US-Calliditas-2022CAL00209

PATIENT
  Age: 66 Year
  Sex: Male

DRUGS (4)
  1. TARPEYO [Suspect]
     Active Substance: BUDESONIDE
     Indication: Haematuria
     Dosage: 16 MG (4 MG CAPSULES) DAILY
     Route: 048
     Dates: start: 20220629, end: 20220713
  2. HYDROCHLOROTHIAZIDE [Concomitant]
     Active Substance: HYDROCHLOROTHIAZIDE
     Dosage: 45MG ONCE DAILY
  3. INSULIN NOS [Concomitant]
     Active Substance: INSULIN NOS
     Dosage: 20 UNITS BEFORE BED
  4. INSULIN NOS [Concomitant]
     Active Substance: INSULIN NOS
     Dosage: 24 UNITS BEFORE BED

REACTIONS (2)
  - Blood pressure increased [Not Recovered/Not Resolved]
  - Blood glucose increased [Recovering/Resolving]

NARRATIVE: CASE EVENT DATE: 20220701
